FAERS Safety Report 7058155-9 (Version None)
Quarter: 2010Q4

REPORT INFORMATION
  Report Type: 
  Country: None (occurrence: None)
  Receive Date: 20101022
  Receipt Date: 20101014
  Transmission Date: 20110411
  Serious: No
  Sender: FDA-Public Use
  Company Number: US-B.I. PHARMACEUTICALS,INC./RIDGEFIELD-2010-BP-11556BP

PATIENT
  Sex: Female

DRUGS (4)
  1. FLOMAX [Suspect]
     Indication: URINARY INCONTINENCE
     Dosage: 0.4 MG
     Route: 048
     Dates: start: 20090301
  2. METOPROLOL [Concomitant]
     Indication: HYPERTENSION
  3. ASPIRIN [Concomitant]
     Indication: HEART RATE IRREGULAR
  4. AMLODIPINE [Concomitant]
     Indication: HYPERTENSION

REACTIONS (7)
  - BLOOD PRESSURE INCREASED [None]
  - DIZZINESS [None]
  - DRUG INEFFECTIVE [None]
  - HEART RATE IRREGULAR [None]
  - INSOMNIA [None]
  - PRURITUS [None]
  - URINARY INCONTINENCE [None]
